FAERS Safety Report 8136336-0 (Version None)
Quarter: 2012Q1

REPORT INFORMATION
  Report Type: 
  Country: None (occurrence: None)
  Receive Date: 20120214
  Receipt Date: 20120201
  Transmission Date: 20120608
  Serious: Yes (Death)
  Sender: FDA-Public Use
  Company Number: JP-NAPPMUNDI-MAG-2012-0002042

PATIENT
  Age: 75 Year
  Sex: Female

DRUGS (4)
  1. WARFARIN SODIUM [Suspect]
     Dosage: 1 MG, DAILY
     Route: 048
  2. OXYCODONE HCL [Interacting]
     Dosage: 20 MG, DAILY
     Route: 048
  3. OXYCODONE HCL [Interacting]
     Indication: CANCER PAIN
     Dosage: 30 MG, DAILY
     Route: 048
  4. WARFARIN SODIUM [Suspect]
     Indication: DEEP VEIN THROMBOSIS
     Dosage: 0.75 MG, DAILY
     Route: 048

REACTIONS (2)
  - DRUG INTERACTION [None]
  - SUBDURAL HAEMATOMA [None]
